FAERS Safety Report 8861116 (Version 2)
Quarter: 2012Q4

REPORT INFORMATION
  Report Type: Spontaneous
  Country: NL (occurrence: None)
  Receive Date: 20121023
  Receipt Date: 20121026
  Transmission Date: 20130627
  Serious: Yes (Death)
  Sender: FDA-Public Use
  Company Number: 2012-5332

PATIENT
  Age: 53 Year
  Sex: Female

DRUGS (3)
  1. SOMATULINE [Suspect]
     Indication: NEUROENDOCRINE TUMOUR
     Dosage: 90 mg (90 mg, 1 in 14 D), Subcutaneous
     Route: 058
     Dates: start: 20100607
  2. SOMATULINE [Suspect]
     Indication: NEUROENDOCRINE TUMOUR
     Dosage: 90 mg (90mg, 1 in 28 d), subcutaneous
  3. SOMATULINE [Suspect]
     Indication: NEUROENDOCRINE TUMOUR

REACTIONS (3)
  - General physical health deterioration [None]
  - Neuroendocrine tumour [None]
  - Neoplasm progression [None]
